FAERS Safety Report 5145031-1 (Version None)
Quarter: 2006Q4

REPORT INFORMATION
  Report Type: 
  Country: None (occurrence: None)
  Receive Date: 20061107
  Receipt Date: 20020418
  Transmission Date: 20070319
  Serious: Yes (Life-Threatening, Hospitalization, Other)
  Sender: FDA-Public Use
  Company Number: GB-GLAXOSMITHKLINE-B0266019A

PATIENT
  Age: 7 Year
  Sex: Male
  Weight: 24 kg

DRUGS (2)
  1. SERETIDE [Suspect]
     Indication: ASTHMA
     Route: 055
     Dates: start: 20001001
  2. SINGULAIR [Concomitant]
     Indication: ASTHMA
     Route: 048
     Dates: start: 20011001

REACTIONS (22)
  - ABDOMINAL PAIN [None]
  - ACTH STIMULATION TEST ABNORMAL [None]
  - ADRENAL INSUFFICIENCY [None]
  - AMNESIA [None]
  - BALANCE DISORDER [None]
  - BLOOD CORTISOL DECREASED [None]
  - BRAIN OEDEMA [None]
  - CIRCULATORY COLLAPSE [None]
  - CONVULSION [None]
  - DEPRESSED LEVEL OF CONSCIOUSNESS [None]
  - DISTURBANCE IN ATTENTION [None]
  - ENCEPHALOPATHY [None]
  - GAIT DISTURBANCE [None]
  - GROWTH RETARDATION [None]
  - HAIR GROWTH ABNORMAL [None]
  - HEMIPLEGIA [None]
  - HYPONATRAEMIA [None]
  - INFLUENZA LIKE ILLNESS [None]
  - METABOLIC ACIDOSIS [None]
  - SOMNOLENCE [None]
  - VISUAL DISTURBANCE [None]
  - VOMITING [None]
